FAERS Safety Report 5108045-3 (Version None)
Quarter: 2006Q3

REPORT INFORMATION
  Report Type: 
  Country: None (occurrence: None)
  Receive Date: 20060919
  Receipt Date: 20060908
  Transmission Date: 20061208
  Serious: Yes (Hospitalization)
  Sender: FDA-Public Use
  Company Number: US-KINGPHARMUSA00001-K200601148

PATIENT
  Age: 90 Year
  Sex: Male

DRUGS (7)
  1. ALTACE [Suspect]
     Indication: ESSENTIAL HYPERTENSION
     Dosage: 2.5 MG, QD
     Route: 048
     Dates: start: 20060312, end: 20060314
  2. CARDENSIEL [Suspect]
     Indication: ESSENTIAL HYPERTENSION
     Dosage: 1.25 MG, QD
     Route: 048
     Dates: end: 20060314
  3. LASILIX [Suspect]
     Dosage: UNK, QD
     Route: 048
     Dates: end: 20060315
  4. DISCOTRINE [Concomitant]
     Dosage: 10 MG, UNK
  5. EUPHYTOSE [Concomitant]
     Dosage: 3 U, QD
  6. OMEPRAZOLE [Concomitant]
     Route: 048
  7. PLAVIX [Concomitant]
     Dosage: 75 MG, UNK
     Route: 048

REACTIONS (6)
  - FALL [None]
  - HYPONATRAEMIA [None]
  - MALAISE [None]
  - ORTHOSTATIC HYPOTENSION [None]
  - PROTEIN TOTAL INCREASED [None]
  - RENAL FAILURE [None]
